FAERS Safety Report 6836045-1 (Version None)
Quarter: 2010Q3

REPORT INFORMATION
  Report Type: 
  Country: None (occurrence: None)
  Receive Date: 20100713
  Receipt Date: 20100706
  Transmission Date: 20110219
  Serious: Yes (Life-Threatening)
  Sender: FDA-Public Use
  Company Number: B0664531A

PATIENT
  Age: 68 Year
  Sex: Female

DRUGS (2)
  1. TYKERB [Suspect]
     Indication: BREAST CANCER
     Dosage: 1250MG PER DAY
     Route: 048
     Dates: start: 20100410, end: 20100625
  2. XELODA [Concomitant]
     Dosage: 2000MGM2 PER DAY
     Route: 048
     Dates: start: 20100410, end: 20100625

REACTIONS (3)
  - CARDIO-RESPIRATORY ARREST [None]
  - SYNCOPE [None]
  - TORSADE DE POINTES [None]
